FAERS Safety Report 8996092 (Version 1)
Quarter: 2013Q1

REPORT INFORMATION
  Report Type: Spontaneous
  Country: US (occurrence: US)
  Receive Date: 20130103
  Receipt Date: 20130103
  Transmission Date: 20140127
  Serious: No
  Sender: FDA-Public Use
  Company Number: US-ABBOTT-12P-163-0995029-00

PATIENT
  Age: 64 None
  Sex: Male
  Weight: 88.53 kg

DRUGS (4)
  1. SYNTHROID [Suspect]
     Indication: HYPOTHYROIDISM
     Route: 048
     Dates: start: 2000, end: 201207
  2. SYNTHROID [Suspect]
     Indication: HYPOTHYROIDISM
     Route: 051
     Dates: start: 20120712, end: 201210
  3. SYNTHROID [Concomitant]
     Indication: PRODUCT USED FOR UNKNOWN INDICATION
     Route: 048
     Dates: start: 201210
  4. MULTIVITAMINS, PLAIN [Concomitant]
     Indication: VITAMIN SUPPLEMENTATION

REACTIONS (3)
  - Blood thyroid stimulating hormone increased [Recovered/Resolved]
  - Blood thyroid stimulating hormone decreased [Not Recovered/Not Resolved]
  - Drug ineffective [Not Recovered/Not Resolved]
